FAERS Safety Report 12404294 (Version 1)
Quarter: 2016Q2

REPORT INFORMATION
  Report Type: Other
  Country: CZ (occurrence: CZ)
  Receive Date: 20160525
  Receipt Date: 20160525
  Transmission Date: 20160815
  Serious: Yes (Life-Threatening, Hospitalization, Other)
  Sender: FDA-Public Use
  Company Number: CZ-SEATTLE GENETICS-2016SGN00810

PATIENT

DRUGS (4)
  1. ADCETRIS [Suspect]
     Active Substance: BRENTUXIMAB VEDOTIN
     Indication: HODGKIN^S DISEASE
     Dosage: 50 MG, UNK
     Route: 065
     Dates: start: 20160511, end: 20160511
  2. HYDROCORTISON VUAB [Concomitant]
     Indication: PREMEDICATION
     Dosage: 200 MG, UNK
     Dates: start: 20160511, end: 20160511
  3. ZYRTEC [Concomitant]
     Active Substance: CETIRIZINE HYDROCHLORIDE
     Indication: PREMEDICATION
     Dosage: 10 MG, UNK
     Dates: start: 20160511, end: 20160511
  4. PARALEN                            /00391201/ [Concomitant]
     Indication: PREMEDICATION
     Dosage: 500 MG, UNK
     Dates: start: 20160511, end: 20160511

REACTIONS (6)
  - Nausea [Recovered/Resolved]
  - Altered state of consciousness [Recovered/Resolved]
  - Anaphylactic reaction [Recovered/Resolved]
  - Hypotension [Recovered/Resolved]
  - Atrial fibrillation [Recovered/Resolved]
  - Bronchospasm [Recovered/Resolved]

NARRATIVE: CASE EVENT DATE: 20160511
